FAERS Safety Report 4370574-8 (Version None)
Quarter: 2004Q2

REPORT INFORMATION
  Report Type: 
  Country: None (occurrence: None)
  Receive Date: 20040603
  Receipt Date: 20040520
  Transmission Date: 20050107
  Serious: Yes (Death, Life-Threatening, Hospitalization)
  Sender: FDA-Public Use
  Company Number: TR-MERCK-0405TUR00005

PATIENT
  Age: 65 Year
  Sex: Female

DRUGS (3)
  1. PRIMAXIN [Suspect]
     Indication: PYREXIA
     Route: 065
  2. CLARITHROMYCIN [Suspect]
     Route: 065
  3. METHYLPREDNISOLONE [Concomitant]
     Indication: TOXIC EPIDERMAL NECROLYSIS
     Route: 065

REACTIONS (2)
  - APLASTIC ANAEMIA [None]
  - CARDIO-RESPIRATORY ARREST [None]
